FAERS Safety Report 5245115-3 (Version None)
Quarter: 2007Q1

REPORT INFORMATION
  Report Type: 
  Country: None (occurrence: None)
  Receive Date: 20070223
  Receipt Date: 20070213
  Transmission Date: 20070707
  Serious: Yes (Hospitalization)
  Sender: FDA-Public Use
  Company Number: PHHO2007FR03326

PATIENT
  Age: 55 Year
  Sex: Male

DRUGS (3)
  1. NEORAL [Suspect]
     Indication: RENAL TRANSPLANT
     Dosage: 325 MG/DAY
     Route: 048
     Dates: start: 20061212
  2. CORTANCYL [Concomitant]
     Indication: RENAL TRANSPLANT
     Dates: start: 20061223
  3. CELLCEPT [Concomitant]
     Indication: RENAL TRANSPLANT
     Dates: start: 20061123

REACTIONS (1)
  - ARTERIOVENOUS FISTULA THROMBOSIS [None]
